FAERS Safety Report 18882952 (Version 1)
Quarter: 2021Q1

REPORT INFORMATION
  Report Type: Spontaneous
  Country: NZ (occurrence: NZ)
  Receive Date: 20210212
  Receipt Date: 20210212
  Transmission Date: 20210420
  Serious: Yes (Other)
  Sender: FDA-Public Use
  Company Number: NZ-SA-2021SA042990

PATIENT
  Age: 51 Year
  Sex: Female

DRUGS (2)
  1. HIRUDOID [Concomitant]
     Active Substance: GLYCOSAMINOGLYCANS
     Route: 061
  2. LEFLUNOMIDE. [Suspect]
     Active Substance: LEFLUNOMIDE
     Route: 048

REACTIONS (5)
  - Vomiting [Unknown]
  - Hepatocellular injury [Unknown]
  - Hyperbilirubinaemia [Unknown]
  - Headache [Unknown]
  - Diarrhoea [Unknown]
